FAERS Safety Report 9794588 (Version 1)
Quarter: 2014Q1

REPORT INFORMATION
  Report Type: Spontaneous
  Country: AU (occurrence: AU)
  Receive Date: 20140102
  Receipt Date: 20140102
  Transmission Date: 20141002
  Serious: Yes (Other)
  Sender: FDA-Public Use
  Company Number: PHHY2013AU153600

PATIENT
  Sex: Male
  Weight: .9 kg

DRUGS (10)
  1. MYCOPHENOLATE MOFETIL [Suspect]
     Route: 064
  2. AMLODIPINE [Suspect]
     Route: 064
  3. PERINDOPRIL [Suspect]
     Route: 064
  4. CANDESARTAN CILEXETIL [Suspect]
     Route: 064
  5. METHYLDOPA [Suspect]
     Route: 064
  6. LABETALOL [Suspect]
     Route: 064
  7. ENOXAPARIN [Suspect]
     Route: 064
  8. ASPIRIN [Suspect]
     Route: 064
  9. HYDRALAZINE [Suspect]
     Route: 064
  10. NIFEDIPINE [Suspect]
     Route: 064

REACTIONS (4)
  - Foetal growth restriction [Recovering/Resolving]
  - Premature baby [Unknown]
  - Low birth weight baby [Unknown]
  - Foetal exposure during pregnancy [Unknown]
